FAERS Safety Report 7369655-6 (Version None)
Quarter: 2011Q1

REPORT INFORMATION
  Report Type: 
  Country: None (occurrence: None)
  Receive Date: 20110317
  Receipt Date: 20110317
  Transmission Date: 20110831
  Serious: Yes (Other)
  Sender: FDA-Public Use
  Company Number: None

PATIENT
  Age: 67 Year
  Sex: Male
  Weight: 106.5953 kg

DRUGS (2)
  1. LISINOPRIL [Suspect]
  2. TRAZODONE HCL [Suspect]
     Indication: INSOMNIA
     Dosage: 50MG TO 100MG EACH NIGHT SEE EVENT
     Dates: start: 20101129

REACTIONS (3)
  - DYSKINESIA [None]
  - SLEEP APNOEA SYNDROME [None]
  - DYSPNOEA [None]
